FAERS Safety Report 15324138 (Version 1)
Quarter: 2018Q4

REPORT INFORMATION
  Report Type: Spontaneous
  Country: ZA (occurrence: ZA)
  Receive Date: 20180828
  Receipt Date: 20180828
  Transmission Date: 20190204
  Serious: Yes (Hospitalization, Other)
  Sender: FDA-Public Use
  Company Number: ZA-LUPIN PHARMACEUTICALS INC.-2018-06085

PATIENT
  Sex: Female

DRUGS (9)
  1. DORMONOCT [Suspect]
     Active Substance: LOPRAZOLAM
     Indication: SLEEP DISORDER
     Dosage: 2 MG, UNK
     Route: 048
     Dates: start: 201802
  2. CELEBREX [Suspect]
     Active Substance: CELECOXIB
     Indication: INFLAMMATION
     Dosage: 200 MG, UNK
     Route: 048
     Dates: start: 201806
  3. AMLOC (AMLODIPINE MALEATE) [Suspect]
     Active Substance: AMLODIPINE MALEATE
     Indication: HYPERTENSION
     Dosage: 10 MG, UNK
     Route: 048
     Dates: start: 201802
  4. SEREFLO [Suspect]
     Active Substance: FLUTICASONE PROPIONATE\SALMETEROL XINAFOATE
     Indication: ASTHMA
     Dosage: 25/125 MCG
     Route: 048
     Dates: start: 201807
  5. LIPANTHYL [Suspect]
     Active Substance: FENOFIBRATE
     Indication: BLOOD CHOLESTEROL ABNORMAL
     Dosage: 200 MG, UNK
     Route: 048
     Dates: start: 201802
  6. EUTHYROX [Suspect]
     Active Substance: LEVOTHYROXINE SODIUM
     Indication: HYPOTHYROIDISM
     Dosage: 125 MCG, UNK
     Route: 048
     Dates: start: 201802
  7. SERC /00034201/ [Suspect]
     Active Substance: THIORIDAZINE
     Indication: VERTIGO
     Dosage: 24 MG, UNK
     Route: 048
     Dates: start: 201807
  8. COZAAR [Suspect]
     Active Substance: LOSARTAN POTASSIUM
     Indication: HYPERTENSION
     Dosage: 50 MG, UNK
     Route: 048
     Dates: start: 201802
  9. URBANOL [Suspect]
     Active Substance: CLOBAZAM
     Indication: ANXIETY
     Dosage: 10 MG, UNK
     Route: 048
     Dates: start: 201807

REACTIONS (1)
  - Pulmonary embolism [Unknown]
